FAERS Safety Report 25085864 (Version 1)
Quarter: 2025Q1

REPORT INFORMATION
  Report Type: Spontaneous
  Country: IT (occurrence: IT)
  Receive Date: 20250317
  Receipt Date: 20250317
  Transmission Date: 20250409
  Serious: Yes (Other)
  Sender: MYLAN
  Company Number: IT-BoehringerIngelheim-2025-BI-012918

PATIENT
  Age: 86 Year
  Sex: Male

DRUGS (1)
  1. DABIGATRAN [Suspect]
     Active Substance: DABIGATRAN
     Indication: Product used for unknown indication
     Dosage: 150 MILLIGRAM, BID

REACTIONS (2)
  - Shock haemorrhagic [Unknown]
  - Hyperlactacidaemia [Unknown]
